FAERS Safety Report 10294276 (Version 1)
Quarter: 2014Q3

REPORT INFORMATION
  Report Type: Spontaneous
  Country: IT (occurrence: IT)
  Receive Date: 20140710
  Receipt Date: 20140710
  Transmission Date: 20150326
  Serious: Yes (Hospitalization)
  Sender: FDA-Public Use
  Company Number: IT-BAYER-2014-100025

PATIENT
  Age: 13 Year
  Sex: Female

DRUGS (5)
  1. PLASIL [Suspect]
     Active Substance: METOCLOPRAMIDE HYDROCHLORIDE
     Indication: INTENTIONAL SELF-INJURY
     Dosage: 30 MG, ONCE
     Route: 048
     Dates: start: 20140602, end: 20140602
  2. HOMEOGENE [Suspect]
     Active Substance: HOMEOPATHICS
     Indication: INTENTIONAL SELF-INJURY
     Dosage: 16 DF, ONCE
     Route: 048
     Dates: start: 20140602, end: 20140602
  3. CIPROXIN [Suspect]
     Active Substance: CIPROFLOXACIN
     Indication: INTENTIONAL SELF-INJURY
     Dosage: 750 MG, ONCE
     Route: 048
     Dates: start: 20140602, end: 20140602
  4. MOMENT 200 [Suspect]
     Active Substance: IBUPROFEN
     Indication: INTENTIONAL SELF-INJURY
     Dosage: 800 MG, ONCE
     Route: 048
     Dates: start: 20140602, end: 20140602
  5. TINSET [Suspect]
     Active Substance: OXATOMIDE
     Indication: INTENTIONAL SELF-INJURY
     Dosage: 90 MG, ONCE
     Route: 048
     Dates: start: 20140602, end: 20140602

REACTIONS (2)
  - Anaphylactic shock [Recovered/Resolved]
  - Drug abuse [Recovered/Resolved]

NARRATIVE: CASE EVENT DATE: 20140602
